FAERS Safety Report 7435858-5 (Version None)
Quarter: 2011Q2

REPORT INFORMATION
  Report Type: 
  Country: None (occurrence: None)
  Receive Date: 20110418
  Receipt Date: 20110405
  Transmission Date: 20111010
  Serious: Yes (Other)
  Sender: FDA-Public Use
  Company Number: TRP_07674_2011

PATIENT
  Age: 25 Year
  Sex: Female

DRUGS (4)
  1. ZYRTEC [Concomitant]
  2. RIBAVIRIN [Suspect]
     Indication: PRODUCT USED FOR UNKNOWN INDICATION
     Dosage: DF
     Dates: start: 20090612, end: 20100514
  3. PRILOSEC [Concomitant]
  4. PEGASYS [Suspect]
     Indication: PRODUCT USED FOR UNKNOWN INDICATION
     Dosage: 80 UG 1X/WEEK, INTRAMUSCULAR
     Route: 030
     Dates: start: 20090612, end: 20100507

REACTIONS (4)
  - CAESAREAN SECTION [None]
  - DRUG EXPOSURE BEFORE PREGNANCY [None]
  - PREGNANCY [None]
  - PREMATURE DELIVERY [None]
